FAERS Safety Report 19569372 (Version 1)
Quarter: 2021Q3

REPORT INFORMATION
  Report Type: Spontaneous
  Country: GB (occurrence: GB)
  Receive Date: 20210716
  Receipt Date: 20210716
  Transmission Date: 20211014
  Serious: Yes (Life-Threatening, Disabling, Other)
  Sender: FDA-Public Use
  Company Number: GB-ELI_LILLY_AND_COMPANY-GB202107004761

PATIENT
  Age: 68 Year
  Sex: Male

DRUGS (4)
  1. DULOXETINE HYDROCHLORIDE. [Suspect]
     Active Substance: DULOXETINE HYDROCHLORIDE
     Indication: MENTAL DISORDER
     Dosage: UNK, UNKNOWN
     Route: 065
  2. MIRTAZAPINE. [Suspect]
     Active Substance: MIRTAZAPINE
     Indication: PRODUCT USED FOR UNKNOWN INDICATION
     Dosage: 20 MG, UNKNOWN
     Route: 065
  3. MIRTAZAPINE. [Suspect]
     Active Substance: MIRTAZAPINE
     Dosage: 2.7 MG, UNKNOWN
     Route: 065
  4. ANTI?D IMMUNOGLOBULIN [Concomitant]
     Active Substance: HUMAN RHO(D) IMMUNE GLOBULIN
     Dosage: UNK UNK, UNKNOWN
     Route: 065

REACTIONS (18)
  - Myalgia [Not Recovered/Not Resolved]
  - Respiration abnormal [Unknown]
  - Off label use [Unknown]
  - Eye disorder [Unknown]
  - Cataract [Unknown]
  - Suicidal ideation [Unknown]
  - Anger [Not Recovered/Not Resolved]
  - Taste disorder [Not Recovered/Not Resolved]
  - Diarrhoea [Recovering/Resolving]
  - Sexual dysfunction [Unknown]
  - Pruritus [Unknown]
  - Hepatic steatosis [Not Recovered/Not Resolved]
  - Drug withdrawal syndrome [Unknown]
  - Mental disorder [Unknown]
  - Altered state of consciousness [Recovered/Resolved]
  - Personal relationship issue [Recovered/Resolved]
  - Fatigue [Not Recovered/Not Resolved]
  - Emotional poverty [Unknown]

NARRATIVE: CASE EVENT DATE: 201806
